FAERS Safety Report 8066515-2 (Version None)
Quarter: 2012Q1

REPORT INFORMATION
  Report Type: 
  Country: None (occurrence: None)
  Receive Date: 20120124
  Receipt Date: 20120115
  Transmission Date: 20120608
  Serious: Yes (Other)
  Sender: FDA-Public Use
  Company Number: PHFR2012GB000609

PATIENT
  Sex: Female

DRUGS (3)
  1. CLOZARIL [Suspect]
     Dosage: 300 MG OD
     Route: 048
     Dates: start: 20120113
  2. CLOZARIL [Suspect]
     Indication: SCHIZOPHRENIA
     Route: 048
     Dates: start: 20111209
  3. CLOZARIL [Suspect]
     Dosage: 325 MG OD
     Route: 048
     Dates: start: 20120114

REACTIONS (2)
  - INCORRECT DOSE ADMINISTERED [None]
  - EOSINOPHIL COUNT INCREASED [None]
